FAERS Safety Report 24361727 (Version 1)
Quarter: 2024Q3

REPORT INFORMATION
  Report Type: Spontaneous
  Country: US (occurrence: None)
  Receive Date: 20240924
  Receipt Date: 20240924
  Transmission Date: 20241017
  Serious: Yes (Death)
  Sender: Public
  Company Number: None

PATIENT
  Age: 79 Year
  Sex: Male

DRUGS (1)
  1. LENALIDOMIDE [Suspect]
     Active Substance: LENALIDOMIDE
     Indication: Myelodysplastic syndrome
     Dosage: 5MG QD ORAL
     Route: 048
     Dates: start: 20240513, end: 20240712

REACTIONS (3)
  - Myelodysplastic syndrome [None]
  - Condition aggravated [None]
  - Anaemia [None]

NARRATIVE: CASE EVENT DATE: 20240712
